FAERS Safety Report 4407065-1 (Version None)
Quarter: 2004Q3

REPORT INFORMATION
  Report Type: 
  Country: None (occurrence: None)
  Receive Date: 20040721
  Receipt Date: 20040715
  Transmission Date: 20050211
  Serious: Yes (Life-Threatening)
  Sender: FDA-Public Use
  Company Number: 805#1#2004-00022

PATIENT
  Age: 0 Year

DRUGS (1)
  1. ALPROSTADIL [Suspect]
     Indication: PATENT DUCTUS ARTERIOSUS
     Route: 041

REACTIONS (1)
  - APNOEA [None]
